FAERS Safety Report 16766277 (Version 1)
Quarter: 2019Q3

REPORT INFORMATION
  Report Type: Spontaneous
  Country: US (occurrence: US)
  Receive Date: 20190713
  Receipt Date: 20190713
  Transmission Date: 20191005
  Serious: No
  Sender: FDA-Public Use
  Company Number: None

PATIENT
  Age: 72 Year
  Sex: Male
  Weight: 95.25 kg

DRUGS (4)
  1. CVS HEALTH LUBRICANT EYE DROPS MULTI-SYMPTON EYE RELIEF RELEAVES REDNE [Suspect]
     Active Substance: GLYCERIN\HYPROMELLOSES\POLYETHYLENE GLYCOL 400\TETRAHYDROZOLINE HYDROCHLORIDE\ZINC SULFATE
     Indication: OCULAR HYPERAEMIA
     Dosage: ?          QUANTITY:1-2 DROPS;?
     Route: 047
     Dates: start: 20190711, end: 20190712
  2. SOLARAY VITAMIN C [Concomitant]
  3. JOINT MOVEMENT GLUCOSMINE [Concomitant]
  4. CENTRUM SILVER MULTI-VITAMIN [Concomitant]

REACTIONS (2)
  - Instillation site pain [None]
  - Vision blurred [None]

NARRATIVE: CASE EVENT DATE: 20190712
